FAERS Safety Report 9149651 (Version 1)
Quarter: 2013Q1

REPORT INFORMATION
  Report Type: Spontaneous
  Country: GB (occurrence: None)
  Receive Date: 20130131
  Receipt Date: 20130131
  Transmission Date: 20140127
  Serious: Yes (Other)
  Sender: FDA-Public Use
  Company Number: CL-466-2013

PATIENT
  Age: 91 Year
  Sex: Male

DRUGS (3)
  1. METRONIDAZOLE? [Suspect]
     Indication: INFLAMMATORY BOWEL DISEASE
     Route: 042
  2. CIPROFLOXACIN [Suspect]
     Indication: INFLAMMATORY BOWEL DISEASE
     Route: 042
  3. MESALAZINE [Suspect]
     Indication: INFLAMMATORY BOWEL DISEASE
     Route: 042

REACTIONS (1)
  - Off label use [None]
